FAERS Safety Report 12010155 (Version 1)
Quarter: 2016Q1

REPORT INFORMATION
  Report Type: Report from Study
  Country: US (occurrence: US)
  Receive Date: 20160205
  Receipt Date: 20160205
  Transmission Date: 20160526
  Serious: Yes (Hospitalization, Other)
  Sender: FDA-Public Use
  Company Number: US-MYLANLABS-2016M1003953

PATIENT

DRUGS (1)
  1. CLOZAPINE. [Suspect]
     Active Substance: CLOZAPINE
     Dosage: 50 MG, QD
     Route: 048
     Dates: end: 20160111

REACTIONS (2)
  - Neutropenia [Not Recovered/Not Resolved]
  - Psychiatric evaluation [Unknown]

NARRATIVE: CASE EVENT DATE: 20160112
